FAERS Safety Report 4293083-3 (Version None)
Quarter: 2004Q1

REPORT INFORMATION
  Report Type: 
  Country: None (occurrence: None)
  Receive Date: 20040212
  Receipt Date: 20020925
  Transmission Date: 20041129
  Serious: No
  Sender: FDA-Public Use
  Company Number: US-GLAXOSMITHKLINE-A0381678A

PATIENT
  Age: 65 Year
  Sex: Female

DRUGS (7)
  1. PAXIL [Suspect]
     Indication: DEPRESSION
     Route: 048
     Dates: start: 20011001
  2. TENORMIN [Concomitant]
  3. NORVASC [Concomitant]
  4. FOSAMAX [Concomitant]
  5. LIPITOR [Concomitant]
  6. ALTACE [Concomitant]
  7. ASPIRIN [Concomitant]

REACTIONS (2)
  - NEGATIVE THOUGHTS [None]
  - TREMOR [None]
